FAERS Safety Report 7240358-1 (Version None)
Quarter: 2011Q1

REPORT INFORMATION
  Report Type: 
  Country: None (occurrence: None)
  Receive Date: 20110119
  Receipt Date: 20110119
  Transmission Date: 20110831
  Serious: Yes (Other)
  Sender: FDA-Public Use
  Company Number: None

PATIENT
  Age: 27 Year
  Sex: Male
  Weight: 95.2554 kg

DRUGS (1)
  1. CIPROFLOXACIN [Suspect]
     Indication: SINUSITIS
     Dosage: 500MG ONE DOSE PO
     Route: 048
     Dates: start: 20110116, end: 20110116

REACTIONS (4)
  - ANXIETY [None]
  - FRUSTRATION [None]
  - EXERCISE TOLERANCE DECREASED [None]
  - TENDON PAIN [None]
